FAERS Safety Report 19363590 (Version 1)
Quarter: 2021Q2

REPORT INFORMATION
  Report Type: Spontaneous
  Country: FR (occurrence: FR)
  Receive Date: 20210603
  Receipt Date: 20210603
  Transmission Date: 20210717
  Serious: Yes (Hospitalization, Other)
  Sender: FDA-Public Use
  Company Number: FR-BAUSCH-BL-2021-018620

PATIENT
  Age: 76 Year
  Sex: Female
  Weight: 74.7 kg

DRUGS (10)
  1. ACICLOVIR [Suspect]
     Active Substance: ACYCLOVIR
     Indication: ENCEPHALITIS
     Route: 041
     Dates: start: 20210429, end: 20210430
  2. PAROXETINE ALMUS 20 MG [Concomitant]
     Indication: DEPRESSION
     Dosage: DOSAGE FORM: SCORED FILM?COATED TABLETS
     Route: 048
     Dates: start: 20210430
  3. METRONIDAZOLE. [Concomitant]
     Active Substance: METRONIDAZOLE
     Indication: ENCEPHALITIS
     Route: 041
     Dates: start: 20210503, end: 20210505
  4. LEVOFLOXACINE [Suspect]
     Active Substance: LEVOFLOXACIN
     Indication: SINUSITIS
     Route: 048
     Dates: start: 20210501, end: 20210503
  5. ACEBUTOLOL (CHLORHYDRATED) [Concomitant]
     Indication: HYPERTENSION
     Route: 048
     Dates: start: 20210504, end: 20210511
  6. AMOXICILLINE [Suspect]
     Active Substance: AMOXICILLIN
     Indication: SINUSITIS
     Route: 041
     Dates: start: 20210429, end: 20210510
  7. CEFTRIAXONE ABBOTT [Concomitant]
     Indication: ENCEPHALITIS
     Route: 041
     Dates: start: 20210430, end: 20210503
  8. AMLODIPINE [Concomitant]
     Active Substance: AMLODIPINE BESYLATE
     Indication: HYPERTENSION
     Route: 048
     Dates: start: 20210505
  9. COAPROVEL 300MG/25MG [Concomitant]
     Active Substance: HYDROCHLOROTHIAZIDE\IRBESARTAN
     Indication: HYPERTENSION
     Dosage: 300MG/25MG
     Route: 048
     Dates: start: 20210430, end: 20210509
  10. LEVETIRACETAM. [Concomitant]
     Active Substance: LEVETIRACETAM
     Indication: TONIC CLONIC MOVEMENTS
     Route: 048
     Dates: start: 20210429

REACTIONS (1)
  - Acute kidney injury [Recovering/Resolving]

NARRATIVE: CASE EVENT DATE: 20210509
